FAERS Safety Report 7378144-4 (Version None)
Quarter: 2011Q1

REPORT INFORMATION
  Report Type: 
  Country: None (occurrence: None)
  Receive Date: 20110317
  Receipt Date: 20110223
  Transmission Date: 20110831
  Serious: Yes (Other)
  Sender: FDA-Public Use
  Company Number: 2128643-2011-00014

PATIENT
  Sex: Female

DRUGS (1)
  1. CVS COLD SORE TREATMENT 412541 [Suspect]
     Indication: ORAL HERPES

REACTIONS (3)
  - SCAR [None]
  - SKIN DISCOLOURATION [None]
  - BLISTER [None]
